FAERS Safety Report 15999421 (Version 2)
Quarter: 2021Q4

REPORT INFORMATION
  Report Type: Spontaneous
  Country: US (occurrence: US)
  Receive Date: 20190225
  Receipt Date: 20211223
  Transmission Date: 20220303
  Serious: Yes (Other)
  Sender: FDA-Public Use
  Company Number: US-PFIZER INC-2019078572

PATIENT
  Age: 76 Year
  Sex: Female
  Weight: 74.84 kg

DRUGS (2)
  1. LEVOTHYROXINE SODIUM [Suspect]
     Active Substance: LEVOTHYROXINE SODIUM
     Dosage: 25 UG
  2. SYNTHROID [Suspect]
     Active Substance: LEVOTHYROXINE SODIUM
     Dosage: 25 UG

REACTIONS (3)
  - Hyperthyroidism [Unknown]
  - Dyspnoea exertional [Unknown]
  - Drug intolerance [Unknown]

NARRATIVE: CASE EVENT DATE: 20120101
